FAERS Safety Report 24921725 (Version 1)
Quarter: 2025Q1

REPORT INFORMATION
  Report Type: Spontaneous
  Country: US (occurrence: None)
  Receive Date: 20250203
  Receipt Date: 20250203
  Transmission Date: 20250409
  Serious: Yes (Hospitalization)
  Sender: FDA-CTU
  Company Number: None

PATIENT
  Age: 62 Year
  Sex: Female

DRUGS (2)
  1. TADALAFIL [Suspect]
     Active Substance: TADALAFIL
     Indication: Pulmonary hypertension
     Dosage: FREQUENCY : DAILY;?
  2. AMBRISENTAN [Suspect]
     Active Substance: AMBRISENTAN

REACTIONS (11)
  - Malaise [None]
  - Sinus headache [None]
  - Pharyngeal swelling [None]
  - Swelling face [None]
  - Flushing [None]
  - Throat tightness [None]
  - Respiratory rate increased [None]
  - Heart rate increased [None]
  - Hypotension [None]
  - Drug hypersensitivity [None]
  - Tremor [None]

NARRATIVE: CASE EVENT DATE: 20250128
